FAERS Safety Report 17985686 (Version 4)
Quarter: 2020Q3

REPORT INFORMATION
  Report Type: Spontaneous
  Country: JP (occurrence: JP)
  Receive Date: 20200706
  Receipt Date: 20200825
  Transmission Date: 20201103
  Serious: Yes (Death, Other)
  Sender: FDA-Public Use
  Company Number: JP-JNJFOC-20200637229

PATIENT
  Age: 89 Year
  Sex: Male

DRUGS (2)
  1. ZYTIGA [Suspect]
     Active Substance: ABIRATERONE ACETATE
     Indication: PROSTATE CANCER METASTATIC
     Dosage: UNKNOWN
     Route: 048
     Dates: start: 2020
  2. ZYTIGA [Suspect]
     Active Substance: ABIRATERONE ACETATE
     Dosage: UNKNOWN
     Route: 048
     Dates: start: 20200401, end: 20200514

REACTIONS (6)
  - Spinal fracture [Unknown]
  - Pain [Unknown]
  - Prostate cancer [Fatal]
  - Prescribed underdose [Unknown]
  - Off label use [Unknown]
  - Purpura [Unknown]

NARRATIVE: CASE EVENT DATE: 2020
